FAERS Safety Report 24373306 (Version 2)
Quarter: 2024Q3

REPORT INFORMATION
  Report Type: Report from Study
  Country: CA (occurrence: CA)
  Receive Date: 20240927
  Receipt Date: 20240930
  Transmission Date: 20241017
  Serious: Yes (Death)
  Sender: BAYER
  Company Number: CA-BAYER-2024A138206

PATIENT
  Age: 56 Year
  Sex: Male

DRUGS (1)
  1. STIVARGA [Suspect]
     Active Substance: REGORAFENIB MONOHYDRATE
     Indication: Hepatocellular carcinoma
     Dosage: 160 MG, QD
     Route: 048
     Dates: start: 20240816

REACTIONS (2)
  - Death [Fatal]
  - Off label use [Unknown]
